FAERS Safety Report 18700762 (Version 1)
Quarter: 2021Q1

REPORT INFORMATION
  Report Type: Spontaneous
  Country: CN (occurrence: CN)
  Receive Date: 20210105
  Receipt Date: 20210105
  Transmission Date: 20210419
  Serious: Yes (Other)
  Sender: FDA-Public Use
  Company Number: NVSC2020CN346903

PATIENT
  Age: 79 Year
  Sex: Male

DRUGS (5)
  1. TEGRETOL [Suspect]
     Active Substance: CARBAMAZEPINE
     Indication: HYPERTENSION
  2. TEGRETOL [Suspect]
     Active Substance: CARBAMAZEPINE
     Indication: ARTERIAL INSUFFICIENCY
     Dosage: `0.2 G, BID
     Route: 048
     Dates: start: 20200725, end: 20200729
  3. TEGRETOL [Suspect]
     Active Substance: CARBAMAZEPINE
     Indication: PROSTATE CANCER
  4. TEGRETOL [Suspect]
     Active Substance: CARBAMAZEPINE
     Indication: ARTERIOSCLEROSIS CORONARY ARTERY
  5. TEGRETOL [Suspect]
     Active Substance: CARBAMAZEPINE
     Indication: TYPE 2 DIABETES MELLITUS

REACTIONS (2)
  - Cytopenia [Recovering/Resolving]
  - Pruritus [Recovering/Resolving]

NARRATIVE: CASE EVENT DATE: 20200809
